FAERS Safety Report 4302411-1 (Version None)
Quarter: 2004Q1

REPORT INFORMATION
  Report Type: 
  Country: None (occurrence: None)
  Receive Date: 20040220
  Receipt Date: 20040119
  Transmission Date: 20041129
  Serious: Yes (Hospitalization)
  Sender: FDA-Public Use
  Company Number: B0320324A

PATIENT
  Age: 25 Year
  Sex: Female

DRUGS (6)
  1. EMGEL  (ERYTHROMYCIN)   (FORMULATION UNKNOWN) [Suspect]
     Indication: PREMATURE RUPTURE OF MEMBRANES
     Dosage: 2/ORAL
     Route: 048
     Dates: start: 20030618, end: 20030618
  2. CANNABIS (FORMUATION UNKNOWN) (CANNABIS) [Suspect]
  3. BETAMETHASONE [Suspect]
     Indication: PREMATURE RUPTURE OF MEMBRANES
     Dosage: 12 MG/ PER DAY/ INTRAMUSCULAR
     Route: 030
     Dates: start: 20030618, end: 20030618
  4. FERROUS SULFATE TAB [Concomitant]
  5. SANDOCAL [Concomitant]
  6. FOLIC ACID [Concomitant]

REACTIONS (11)
  - AGITATION [None]
  - BRADYCARDIA [None]
  - CIRCULATORY COLLAPSE [None]
  - COMPLICATIONS OF MATERNAL EXPOSURE TO THERAPEUTIC DRUGS [None]
  - FOETAL DISORDER [None]
  - HYPOKALAEMIA [None]
  - HYPOMAGNESAEMIA [None]
  - MATERNAL THERAPY TO ENHANCE FOETAL LUNG MATURITY [None]
  - MUSCULAR WEAKNESS [None]
  - PREMATURE BABY [None]
  - RENAL TUBULAR ACIDOSIS [None]
